FAERS Safety Report 5056077-6 (Version None)
Quarter: 2006Q3

REPORT INFORMATION
  Report Type: 
  Country: None (occurrence: None)
  Receive Date: 20060717
  Receipt Date: 20060717
  Transmission Date: 20061208
  Serious: Yes (Other)
  Sender: FDA-Public Use
  Company Number: None

PATIENT
  Sex: Male
  Weight: 81.6475 kg

DRUGS (2)
  1. NEVANAC [Suspect]
     Indication: EYE LASER SURGERY
     Dosage: ONE DROP TID LEFT EYE
     Dates: start: 20051130, end: 20051212
  2. NEVANAC [Suspect]
     Indication: PROCEDURAL PAIN
     Dosage: ONE DROP TID LEFT EYE
     Dates: start: 20051130, end: 20051212

REACTIONS (3)
  - IMPAIRED HEALING [None]
  - POST PROCEDURAL COMPLICATION [None]
  - VISION BLURRED [None]
